FAERS Safety Report 23448085 (Version 11)
Quarter: 2025Q3

REPORT INFORMATION
  Report Type: Spontaneous
  Country: US (occurrence: US)
  Receive Date: 20240126
  Receipt Date: 20250910
  Transmission Date: 20251020
  Serious: Yes (Other)
  Sender: PFIZER
  Company Number: US-PFIZER INC-202400015961

PATIENT
  Age: 35 Year
  Sex: Female
  Weight: 132.45 kg

DRUGS (6)
  1. XELJANZ [Suspect]
     Active Substance: TOFACITINIB CITRATE
     Indication: Colitis ulcerative
     Dosage: 5 MG, 2X/DAY
     Route: 048
     Dates: start: 2023
  2. XELJANZ [Suspect]
     Active Substance: TOFACITINIB CITRATE
     Dosage: 10 MG, 2X/DAY
     Route: 048
     Dates: start: 2024
  3. XELJANZ [Suspect]
     Active Substance: TOFACITINIB CITRATE
  4. COZAAR [Concomitant]
     Active Substance: LOSARTAN POTASSIUM
  5. ENTOCORT [Concomitant]
     Active Substance: BUDESONIDE
  6. ZOFRAN [Concomitant]
     Active Substance: ONDANSETRON HYDROCHLORIDE

REACTIONS (15)
  - Colitis [Unknown]
  - Haematochezia [Unknown]
  - Infection [Unknown]
  - Diarrhoea [Unknown]
  - Nausea [Unknown]
  - Vomiting [Unknown]
  - Defaecation urgency [Unknown]
  - Weight decreased [Unknown]
  - Erythema [Unknown]
  - Pruritus [Unknown]
  - Temperature intolerance [Unknown]
  - Faecal calprotectin increased [Unknown]
  - Alopecia [Unknown]
  - Attention deficit hyperactivity disorder [Unknown]
  - Drug ineffective [Unknown]

NARRATIVE: CASE EVENT DATE: 20240101
